FAERS Safety Report 17064091 (Version 1)
Quarter: 2019Q4

REPORT INFORMATION
  Report Type: Spontaneous
  Country: GB (occurrence: GB)
  Receive Date: 20191122
  Receipt Date: 20191122
  Transmission Date: 20200122
  Serious: Yes (Hospitalization, Disabling)
  Sender: FDA-Public Use
  Company Number: GB-TEVA-2019-GB-1139096

PATIENT
  Age: 47 Year
  Sex: Female
  Weight: 110.67 kg

DRUGS (4)
  1. LOSARTAN POTASSIUM. [Concomitant]
     Active Substance: LOSARTAN POTASSIUM
  2. DULOXETINE. [Concomitant]
     Active Substance: DULOXETINE
  3. PREGABALIN. [Concomitant]
     Active Substance: PREGABALIN
  4. QUETIAPINE FUMARATE. [Suspect]
     Active Substance: QUETIAPINE FUMARATE
     Indication: ANXIETY
     Dosage: 150 MG
     Route: 048
     Dates: start: 2011

REACTIONS (9)
  - Confusional state [Unknown]
  - Neurotoxicity [Not Recovered/Not Resolved]
  - Aphasia [Unknown]
  - Hemiparaesthesia [Unknown]
  - Gait disturbance [Unknown]
  - Facial paralysis [Unknown]
  - Dizziness [Unknown]
  - Hypotension [Unknown]
  - Headache [Unknown]

NARRATIVE: CASE EVENT DATE: 20180727
